FAERS Safety Report 9057820 (Version 1)
Quarter: 2013Q1

REPORT INFORMATION
  Report Type: Spontaneous
  Country: US (occurrence: None)
  Receive Date: 20130204
  Receipt Date: 20130204
  Transmission Date: 20140127
  Serious: Yes (Other)
  Sender: FDA-Public Use
  Company Number: None

PATIENT
  Age: 35 Year
  Sex: Male
  Weight: 85 kg

DRUGS (15)
  1. EXJADE [Suspect]
     Indication: IRON OVERLOAD
     Route: 048
     Dates: start: 20070310, end: 20130201
  2. HYDROMORPHONE [Concomitant]
  3. DILAUDID [Concomitant]
  4. METHADONE [Concomitant]
  5. POTASSIUM CHLORIDE [Concomitant]
  6. CALCIUM-VITAMIN D OSCAL+ D [Concomitant]
  7. OMEPRAZOLE -PRILOSEC- [Concomitant]
  8. DEFERASIROX -EXJADE ORAL- [Concomitant]
  9. AMLODIPINE -NORVASC- [Concomitant]
  10. HYDROXYUREA -HYDREA- [Concomitant]
  11. FOLIC ACID -FOLIC ACID- [Concomitant]
  12. CHOLECALCIFEROL -VITAMIN D3- [Concomitant]
  13. GUAR GUM -NUTRISOUCE FIBER- [Concomitant]
  14. MAGNESIUM OXIDE [Concomitant]
  15. EMOLLIENT -AQUAPHOR- [Concomitant]

REACTIONS (1)
  - Haematemesis [None]
